FAERS Safety Report 25041507 (Version 1)
Quarter: 2025Q1

REPORT INFORMATION
  Report Type: Spontaneous
  Country: US (occurrence: US)
  Receive Date: 20250305
  Receipt Date: 20250305
  Transmission Date: 20250409
  Serious: No
  Sender: BAYER HEALTHCARE PHARMACEUTICALS INC.
  Company Number: US-BAYER-2025A029187

PATIENT
  Sex: Female

DRUGS (7)
  1. MIRENA [Suspect]
     Active Substance: LEVONORGESTREL
     Indication: Intrauterine contraception
     Dosage: 20?G/DAY
     Route: 015
     Dates: start: 201908
  2. MIRENA [Suspect]
     Active Substance: LEVONORGESTREL
     Indication: Heavy menstrual bleeding
  3. CAPECITABINE [Concomitant]
     Active Substance: CAPECITABINE
  4. XELODA [Concomitant]
     Active Substance: CAPECITABINE
  5. EUCERIN [Concomitant]
     Active Substance: ENSULIZOLE\EUCERIN\OCTINOXATE\OCTISALATE\TITANIUM DIOXIDE\ZINC OXIDE
  6. Nivea [Concomitant]
  7. AQUAPHOR [Concomitant]
     Active Substance: PETROLATUM

REACTIONS (4)
  - Pruritus [None]
  - Pain in extremity [None]
  - Skin discolouration [None]
  - Alopecia [None]
